FAERS Safety Report 10515024 (Version 2)
Quarter: 2014Q4

REPORT INFORMATION
  Report Type: Report from Study
  Country: US (occurrence: US)
  Receive Date: 20141013
  Receipt Date: 20141021
  Transmission Date: 20150528
  Serious: Yes (Hospitalization)
  Sender: FDA-Public Use
  Company Number: PHEH2014US020280

PATIENT
  Sex: Female

DRUGS (2)
  1. TOBI PODHALER [Suspect]
     Active Substance: TOBRAMYCIN
     Indication: LUNG DISORDER
  2. TOBI PODHALER [Suspect]
     Active Substance: TOBRAMYCIN
     Indication: CYSTIC FIBROSIS
     Dosage: 112 MG, BID
     Route: 055

REACTIONS (3)
  - Condition aggravated [Recovering/Resolving]
  - Cystic fibrosis [Recovering/Resolving]
  - Pulmonary function test decreased [Recovering/Resolving]
